FAERS Safety Report 7803323 (Version 5)
Quarter: 2014Q4

REPORT INFORMATION
  Report Type: Spontaneous
  Country: US (occurrence: US)
  Receive Date: 20110208
  Receipt Date: 20141205
  Transmission Date: 20150529
  Serious: Yes (Hospitalization, Other)
  Sender: FDA-Public Use
  Company Number: US-BAYER-2011-010789

PATIENT
  Age: 18 Year
  Sex: Female
  Weight: 45.35 kg

DRUGS (7)
  1. INDOMETHACIN. [Concomitant]
     Active Substance: INDOMETHACIN
     Indication: MIGRAINE
  2. WELLBUTRIN [Concomitant]
     Active Substance: BUPROPION HYDROCHLORIDE
     Indication: DEPRESSION
     Dosage: UNK
     Dates: start: 2008
  3. NEURONTIN [Concomitant]
     Active Substance: GABAPENTIN
     Indication: DEPRESSION
     Dosage: UNK
     Dates: start: 2011, end: 2012
  4. INDOMETHACIN. [Concomitant]
     Active Substance: INDOMETHACIN
     Indication: NECK PAIN
     Dosage: 25 MG, TID AS NEEDED
     Route: 048
  5. NORGESIC [ACETYLSALICYLIC ACID,CAFFEINE,ORPHENADRINE CITRATE] [Concomitant]
     Indication: NECK PAIN
     Dosage: 770 -60 MG EVERY 8 HOURS AS NEEDED
     Route: 048
  6. MIRENA [Suspect]
     Active Substance: LEVONORGESTREL
     Indication: CONTRACEPTION
     Dosage: 20 MCG/24HR, CONT
     Route: 015
     Dates: start: 20081218, end: 20120608
  7. NORGESIC [ACETYLSALICYLIC ACID,CAFFEINE,ORPHENADRINE CITRATE] [Concomitant]
     Indication: MIGRAINE

REACTIONS (10)
  - Abdominal pain [Not Recovered/Not Resolved]
  - Off label use [None]
  - Uterine perforation [None]
  - Gonorrhoea [None]
  - Chlamydial infection [None]
  - Pelvic inflammatory disease [Not Recovered/Not Resolved]
  - Pelvic pain [None]
  - Device dislocation [None]
  - Device issue [None]
  - Injury [None]

NARRATIVE: CASE EVENT DATE: 200901
